FAERS Safety Report 9702283 (Version 4)
Quarter: 2018Q4

REPORT INFORMATION
  Report Type: Spontaneous
  Country: FR (occurrence: FR)
  Receive Date: 20131121
  Receipt Date: 20181027
  Transmission Date: 20190205
  Serious: Yes (Hospitalization)
  Sender: FDA-Public Use
  Company Number: PHHY2013FR130591

PATIENT
  Age: 52 Year
  Sex: Female

DRUGS (16)
  1. IBUPROFEN SANDOZ [Suspect]
     Active Substance: IBUPROFEN
     Dosage: UNK UKN, UNK
     Route: 048
     Dates: start: 20131001, end: 20131002
  2. ZOPHREN [Suspect]
     Active Substance: ONDANSETRON
     Indication: PRODUCT USED FOR UNKNOWN INDICATION
     Dosage: UNK UKN, UNK
     Route: 048
     Dates: start: 20130930, end: 201310
  3. MOTILIUM [Concomitant]
     Active Substance: DOMPERIDONE
  4. FORLAX [Concomitant]
     Active Substance: POLYETHYLENE GLYCOL 4000
  5. ESIDREX [Concomitant]
     Active Substance: HYDROCHLOROTHIAZIDE
  6. KARDEGIC [Concomitant]
     Active Substance: ASPIRIN DL-LYSINE
  7. OMEPRAZOLE. [Suspect]
     Active Substance: OMEPRAZOLE
     Dosage: UNK UKN, UNK
     Route: 048
     Dates: start: 20131001, end: 20131016
  8. ISOPTINE [Concomitant]
     Active Substance: VERAPAMIL HYDROCHLORIDE
  9. CYMBALTA [Concomitant]
     Active Substance: DULOXETINE HYDROCHLORIDE
  10. TOPALGIC (TRAMADOL HYDROCHLORIDE) [Concomitant]
     Active Substance: TRAMADOL HYDROCHLORIDE
  11. PRINCI B [Concomitant]
  12. SIMVASTATIN. [Concomitant]
     Active Substance: SIMVASTATIN
  13. LAMISIL [Suspect]
     Active Substance: TERBINAFINE HYDROCHLORIDE
     Dosage: 1 DF, QD
     Route: 048
     Dates: start: 201309, end: 20131016
  14. PYOSTACINE [Suspect]
     Active Substance: PRISTINAMYCIN
     Dosage: UNK UKN, UNK
     Route: 048
     Dates: start: 20131004, end: 20131007
  15. TRAMADOL. [Suspect]
     Active Substance: TRAMADOL
     Dosage: UNK UKN, UNK
     Route: 048
     Dates: start: 20130930, end: 201310
  16. TRIATEC (RAMIPRIL) [Concomitant]
     Active Substance: RAMIPRIL

REACTIONS (7)
  - Skin lesion [Unknown]
  - Toxic skin eruption [Recovered/Resolved]
  - Skin test positive [Unknown]
  - Rash erythematous [Unknown]
  - Pruritus [Unknown]
  - Rash maculo-papular [Unknown]
  - Cheilitis [Unknown]

NARRATIVE: CASE EVENT DATE: 20131006
